FAERS Safety Report 14997733 (Version 2)
Quarter: 2018Q2

REPORT INFORMATION
  Report Type: Spontaneous
  Country: ES (occurrence: ES)
  Receive Date: 20180611
  Receipt Date: 20180613
  Transmission Date: 20180711
  Serious: Yes (Life-Threatening)
  Sender: FDA-Public Use
  Company Number: ES-PFIZER INC-2018234884

PATIENT
  Age: 6 Decade
  Sex: Female

DRUGS (4)
  1. SORAFENIB [Suspect]
     Active Substance: SORAFENIB
     Dosage: UNK (FULL DOSE)
  2. SORAFENIB [Suspect]
     Active Substance: SORAFENIB
     Indication: METASTASES TO LUNG
     Dosage: 400 MG, 2X/DAY (EVERY 12 HOURS)
  3. SORAFENIB [Suspect]
     Active Substance: SORAFENIB
     Dosage: UNK (HALF DOSE)
  4. SORAFENIB [Suspect]
     Active Substance: SORAFENIB
     Dosage: UNK (HALF DOSE)

REACTIONS (1)
  - Acute generalised exanthematous pustulosis [Recovering/Resolving]
